FAERS Safety Report 10561857 (Version 1)
Quarter: 2014Q4

REPORT INFORMATION
  Report Type: Spontaneous
  Country: BR (occurrence: BR)
  Receive Date: 20141104
  Receipt Date: 20141104
  Transmission Date: 20150529
  Serious: Yes (Hospitalization)
  Sender: FDA-Public Use
  Company Number: BR-AMGEN-BRASP2014084435

PATIENT
  Age: 72 Year
  Sex: Male

DRUGS (11)
  1. FILGRASTIM [Suspect]
     Active Substance: FILGRASTIM
     Indication: PRODUCT USED FOR UNKNOWN INDICATION
     Dosage: 300 MUG, UNK
     Route: 065
     Dates: start: 20140830, end: 20140906
  2. GENUXAL [Suspect]
     Active Substance: CYCLOPHOSPHAMIDE
     Indication: LYMPHOMA
     Dosage: 1316.25 MG, 1 IN 21 D
     Route: 042
     Dates: start: 20140422
  3. MABTHERA [Suspect]
     Active Substance: RITUXIMAB
     Dosage: 658.125 MG, 1 IN 21 D
     Route: 042
     Dates: start: 20141003
  4. SYNTHROID [Concomitant]
     Active Substance: LEVOTHYROXINE SODIUM
     Dosage: UNK
  5. VONAU [Concomitant]
     Dosage: UNK
  6. FAULDVINCRI [Suspect]
     Active Substance: VINCRISTINE SULFATE
     Indication: LYMPHOMA
     Dosage: 2 MG, 1 IN 21 D
     Route: 042
     Dates: start: 20140422
  7. FAULDOXO [Suspect]
     Active Substance: DOXORUBICIN HYDROCHLORIDE
     Indication: LYMPHOMA
     Dosage: 87.75 MG, 1 IN 21 D
     Route: 042
     Dates: start: 20140422
  8. SUSTRATE [Concomitant]
     Active Substance: PROPATYL NITRATE
     Dosage: UNK
  9. PANTOPRAZOLE [Concomitant]
     Active Substance: PANTOPRAZOLE SODIUM
     Dosage: UNK
  10. MABTHERA [Suspect]
     Active Substance: RITUXIMAB
     Indication: LYMPHOMA
     Dosage: 658.125 MG, 1 IN 21 D
     Route: 042
     Dates: start: 20140422
  11. OXCORD [Concomitant]
     Active Substance: NIFEDIPINE
     Dosage: UNK

REACTIONS (1)
  - Febrile neutropenia [Recovered/Resolved]
